FAERS Safety Report 4522428-1 (Version None)
Quarter: 2004Q4

REPORT INFORMATION
  Report Type: 
  Country: None (occurrence: None)
  Receive Date: 20041209
  Receipt Date: 20040323
  Transmission Date: 20050328
  Serious: Yes (Other)
  Sender: FDA-Public Use
  Company Number: PHEH2004US03371

PATIENT
  Age: 55 Year
  Sex: Male

DRUGS (7)
  1. THALIDOMIDE [Concomitant]
     Indication: MULTIPLE MYELOMA
     Dosage: 150 MG, QHS
     Dates: start: 20030601
  2. DEXAMETHASONE [Concomitant]
     Indication: MULTIPLE MYELOMA
     Dates: start: 20030601
  3. COUMADIN [Concomitant]
     Dosage: 4 MG, QD
     Dates: start: 20030601
  4. BEXTRA [Concomitant]
     Dosage: 10 MG, QD
  5. CYTOXAN [Concomitant]
  6. RITUXAN [Concomitant]
  7. ZOMETA [Suspect]
     Indication: MULTIPLE MYELOMA
     Dosage: 4 MG EVERY 4 WEEKS
     Route: 042
     Dates: start: 20011115

REACTIONS (1)
  - PRIMARY SEQUESTRUM [None]
